FAERS Safety Report 4716399-2 (Version None)
Quarter: 2005Q3

REPORT INFORMATION
  Report Type: 
  Country: None (occurrence: None)
  Receive Date: 20050713
  Receipt Date: 20050601
  Transmission Date: 20060218
  Serious: Yes (Hospitalization)
  Sender: FDA-Public Use
  Company Number: 11421

PATIENT
  Age: 69 Year
  Sex: Female
  Weight: 65.4 kg

DRUGS (9)
  1. FLUOROURACIL [Suspect]
     Indication: BILIARY NEOPLASM
     Dosage: 375 MG/M2 OTH IV
     Route: 042
     Dates: start: 20050228, end: 20050304
  2. LEUCOVORIN CALCIUM [Suspect]
     Indication: BILIARY NEOPLASM
     Dosage: 25 MG/M2 OTH IV
     Route: 042
     Dates: start: 20050228, end: 20050304
  3. TOPROL-XL [Concomitant]
  4. LISINOPRIL [Concomitant]
  5. ZOCOR [Concomitant]
  6. OXYCONTIN [Concomitant]
  7. MS CONTIN [Concomitant]
  8. IRON SULFATETHIAMIN COMPOUND TAB [Concomitant]
  9. ASPIRIN [Concomitant]

REACTIONS (10)
  - ASTHENIA [None]
  - BODY TEMPERATURE INCREASED [None]
  - COUGH [None]
  - DEHYDRATION [None]
  - DIARRHOEA [None]
  - LEUKOPENIA [None]
  - LIP PAIN [None]
  - MUCOSAL INFLAMMATION [None]
  - STOMATITIS [None]
  - WHEEZING [None]
